FAERS Safety Report 6028261-6 (Version None)
Quarter: 2009Q1

REPORT INFORMATION
  Report Type: 
  Country: None (occurrence: None)
  Receive Date: 20090102
  Receipt Date: 20081215
  Transmission Date: 20090719
  Serious: Yes (Other)
  Sender: FDA-Public Use
  Company Number: SPV1-2008-01630

PATIENT
  Age: 68 Year
  Sex: Male

DRUGS (2)
  1. MIDODRINE HYDROCHLORIDE [Suspect]
     Dosage: 8.5 MG, 3X/DAY:TID, ORAL; 12.5 MG DAILY, ORAL
     Route: 048
     Dates: start: 20030731
  2. SYNACTHENE /00137801/ (TETRACOSACITIDE) INJECTION [Concomitant]

REACTIONS (1)
  - LEUKOPENIA [None]
